FAERS Safety Report 12095964 (Version 1)
Quarter: 2016Q1

REPORT INFORMATION
  Report Type: Other
  Country: US (occurrence: US)
  Receive Date: 20160220
  Receipt Date: 20160220
  Transmission Date: 20160526
  Serious: No
  Sender: FDA-Public Use
  Company Number: US-ACORDA-ACO_109599_2015

PATIENT
  Sex: Male
  Weight: 82.77 kg

DRUGS (5)
  1. GINGKO BILOBA [Concomitant]
     Indication: PRODUCT USED FOR UNKNOWN INDICATION
     Dosage: UNK
     Route: 065
  2. ^CHOLESTEROL MEDICATION^ [Concomitant]
     Indication: PRODUCT USED FOR UNKNOWN INDICATION
  3. TECFIDERA [Concomitant]
     Active Substance: DIMETHYL FUMARATE
     Indication: PRODUCT USED FOR UNKNOWN INDICATION
     Dosage: UNK
     Route: 065
  4. ^BLOOD THINNER^ [Concomitant]
     Indication: PRODUCT USED FOR UNKNOWN INDICATION
  5. AMPYRA [Suspect]
     Active Substance: DALFAMPRIDINE
     Indication: GAIT DISTURBANCE
     Dosage: 10 MG, Q 12 HRS
     Route: 048

REACTIONS (2)
  - Movement disorder [Not Recovered/Not Resolved]
  - Drug effect decreased [Unknown]
